FAERS Safety Report 12698732 (Version 1)
Quarter: 2016Q3

REPORT INFORMATION
  Report Type: Spontaneous
  Country: JP (occurrence: JP)
  Receive Date: 20160830
  Receipt Date: 20160830
  Transmission Date: 20161109
  Serious: Yes (Hospitalization, Other)
  Sender: FDA-Public Use
  Company Number: JP-GLAXOSMITHKLINE-JP2016JPN123687

PATIENT
  Age: 79 Year
  Sex: Female

DRUGS (7)
  1. AZUNOL [Concomitant]
     Active Substance: SODIUM GUALENATE
  2. CALONAL [Concomitant]
     Active Substance: ACETAMINOPHEN
  3. SERETIDE [Suspect]
     Active Substance: FLUTICASONE PROPIONATE\SALMETEROL XINAFOATE
     Indication: ASTHMA
  4. VALTREX [Suspect]
     Active Substance: VALACYCLOVIR HYDROCHLORIDE
     Indication: HERPES ZOSTER
     Dosage: 500 MG, TID
     Route: 048
     Dates: start: 20160815, end: 20160818
  5. LYRICA [Concomitant]
     Active Substance: PREGABALIN
  6. METHYCOBAL [Concomitant]
     Active Substance: METHYLCOBALAMIN
  7. NEUROTROPIN (JAPAN) [Concomitant]

REACTIONS (2)
  - Loss of consciousness [Recovered/Resolved]
  - Encephalopathy [Recovering/Resolving]

NARRATIVE: CASE EVENT DATE: 201608
